FAERS Safety Report 21773751 (Version 1)
Quarter: 2022Q4

REPORT INFORMATION
  Report Type: Spontaneous
  Country: US (occurrence: US)
  Receive Date: 20221223
  Receipt Date: 20221223
  Transmission Date: 20230113
  Serious: No
  Sender: FDA-Public Use
  Company Number: US-MYLANLABS-2022M1139130

PATIENT
  Sex: Female
  Weight: 94.35 kg

DRUGS (1)
  1. LATANOPROST [Suspect]
     Active Substance: LATANOPROST
     Indication: Cataract
     Dosage: UNK UNK, HS, (ONE DROP OF THE PRODUCT IN EACH EYE, EVERY NIGHT)
     Route: 065

REACTIONS (2)
  - Product packaging quantity issue [Unknown]
  - Off label use [Unknown]
